FAERS Safety Report 11792543 (Version 2)
Quarter: 2016Q1

REPORT INFORMATION
  Report Type: Spontaneous
  Country: US (occurrence: US)
  Receive Date: 20151202
  Receipt Date: 20160111
  Transmission Date: 20160525
  Serious: Yes (Hospitalization)
  Sender: FDA-Public Use
  Company Number: US-BEH-2015056035

PATIENT
  Sex: Female
  Weight: 49 kg

DRUGS (18)
  1. VITAMIN C [Concomitant]
     Active Substance: ASCORBIC ACID
  2. HIZENTRA [Suspect]
     Active Substance: HUMAN IMMUNOGLOBULIN G
     Indication: IMMUNODEFICIENCY COMMON VARIABLE
     Route: 058
  3. TEMAZEPAM. [Suspect]
     Active Substance: TEMAZEPAM
  4. DAILY MULTIVITAMIN [Concomitant]
     Active Substance: VITAMINS
  5. LIDOCAINE. [Concomitant]
     Active Substance: LIDOCAINE
  6. RESTASIS [Concomitant]
     Active Substance: CYCLOSPORINE
  7. ACYCLOVIR. [Concomitant]
     Active Substance: ACYCLOVIR
  8. NEURONTIN [Suspect]
     Active Substance: GABAPENTIN
  9. EPIPEN [Concomitant]
     Active Substance: EPINEPHRINE
  10. PREDNISOLONE. [Concomitant]
     Active Substance: PREDNISOLONE
  11. ZITHROMAX [Concomitant]
     Active Substance: AZITHROMYCIN DIHYDRATE
  12. DIPHENHYDRAMINE. [Suspect]
     Active Substance: DIPHENHYDRAMINE
  13. LORTAB [Suspect]
     Active Substance: ACETAMINOPHEN\HYDROCODONE BITARTRATE
  14. METOPROLOL. [Concomitant]
     Active Substance: METOPROLOL
  15. CLINDAMYCIN [Concomitant]
     Active Substance: CLINDAMYCIN\CLINDAMYCIN PHOSPHATE
  16. LOVASTATIN. [Concomitant]
     Active Substance: LOVASTATIN
  17. CALCIUM +D [Concomitant]
     Active Substance: CALCIUM\VITAMIN D
  18. SERTRALINE [Concomitant]
     Active Substance: SERTRALINE HYDROCHLORIDE

REACTIONS (4)
  - Wrist fracture [Unknown]
  - Fall [Unknown]
  - Hip fracture [Unknown]
  - Sinusitis [Unknown]
